FAERS Safety Report 23382226 (Version 3)
Quarter: 2024Q1

REPORT INFORMATION
  Report Type: Spontaneous
  Country: DE (occurrence: DE)
  Receive Date: 20240109
  Receipt Date: 20240116
  Transmission Date: 20240409
  Serious: Yes (Other)
  Sender: FDA-Public Use
  Company Number: DE-UCBSA-2024000878

PATIENT
  Age: 11 Year
  Sex: Male

DRUGS (3)
  1. BRIVIACT [Suspect]
     Active Substance: BRIVARACETAM
     Indication: Product used for unknown indication
     Dosage: 75 MILLIGRAM, 2X/DAY (BID) (75?0?75)
     Dates: start: 202312
  2. BRIVIACT [Suspect]
     Active Substance: BRIVARACETAM
     Dosage: 75MG?0?100MG
     Dates: start: 20231225
  3. BRIVIACT [Suspect]
     Active Substance: BRIVARACETAM
     Dosage: 100 MILLIGRAM, 2X/DAY (BID) (100?0?100)
     Dates: start: 20231229

REACTIONS (2)
  - Seizure [Recovered/Resolved]
  - Product use issue [Unknown]

NARRATIVE: CASE EVENT DATE: 20231225
